FAERS Safety Report 6034883-9 (Version None)
Quarter: 2009Q1

REPORT INFORMATION
  Report Type: 
  Country: None (occurrence: None)
  Receive Date: 20090112
  Receipt Date: 20081008
  Transmission Date: 20090719
  Serious: Yes (Other)
  Sender: FDA-Public Use
  Company Number: JP-SANOFI-SYNTHELABO-A01200812298

PATIENT
  Age: 79 Year
  Sex: Male
  Weight: 60 kg

DRUGS (6)
  1. VOGLIDASE [Concomitant]
     Indication: DIABETES MELLITUS
     Route: 065
  2. AMARYL [Concomitant]
     Indication: DIABETES MELLITUS
     Dosage: 2 MG
     Route: 065
  3. AMARYL [Concomitant]
     Route: 065
     Dates: start: 20061102
  4. LIPITOR [Concomitant]
     Indication: HYPERLIPIDAEMIA
     Route: 065
  5. PLAVIX [Suspect]
     Indication: TRANSIENT ISCHAEMIC ATTACK
     Route: 048
     Dates: start: 20080729, end: 20080929
  6. PLAVIX [Suspect]
     Route: 048
     Dates: start: 20080930

REACTIONS (2)
  - ACCIDENTAL OVERDOSE [None]
  - HEPATIC ENZYME INCREASED [None]
